FAERS Safety Report 15101254 (Version 1)
Quarter: 2018Q3

REPORT INFORMATION
  Report Type: Spontaneous
  Country: CA (occurrence: CA)
  Receive Date: 20180703
  Receipt Date: 20180703
  Transmission Date: 20181010
  Serious: Yes (Other)
  Sender: FDA-Public Use
  Company Number: CA-TEVA-2018-CA-917409

PATIENT
  Age: 62 Year
  Sex: Female
  Weight: 65 kg

DRUGS (23)
  1. PREDNISONE. [Suspect]
     Active Substance: PREDNISONE
     Route: 065
  2. FOLATE [Concomitant]
     Active Substance: FOLATE SODIUM
  3. SULFASALAZINE. [Concomitant]
     Active Substance: SULFASALAZINE
  4. PREDNISONE. [Suspect]
     Active Substance: PREDNISONE
     Route: 065
  5. PREDNISONE. [Suspect]
     Active Substance: PREDNISONE
     Route: 065
  6. PREDNISONE. [Suspect]
     Active Substance: PREDNISONE
     Route: 065
  7. VITAMIN B12 [Concomitant]
     Active Substance: CYANOCOBALAMIN
  8. VITAMIN D [Concomitant]
     Active Substance: CHOLECALCIFEROL
  9. METFORMIN [Concomitant]
     Active Substance: METFORMIN HYDROCHLORIDE
  10. PREDNISONE. [Suspect]
     Active Substance: PREDNISONE
     Indication: RHEUMATOID ARTHRITIS
     Route: 065
  11. ASA [Concomitant]
     Active Substance: ASPIRIN
  12. METHOTREXATE. [Concomitant]
     Active Substance: METHOTREXATE
     Route: 013
  13. PREDNISONE. [Suspect]
     Active Substance: PREDNISONE
     Route: 065
  14. ALTACE [Concomitant]
     Active Substance: RAMIPRIL
  15. PREDNISONE. [Suspect]
     Active Substance: PREDNISONE
     Route: 065
  16. PREDNISONE. [Suspect]
     Active Substance: PREDNISONE
     Route: 065
  17. BUDESONIDE. [Concomitant]
     Active Substance: BUDESONIDE
  18. FERAMAX [Concomitant]
     Active Substance: IRON\POLYSACCHARIDES
  19. MAGNESIUM [Concomitant]
     Active Substance: MAGNESIUM
  20. TECTA [Concomitant]
     Active Substance: PANTOPRAZOLE MAGNESIUM
  21. GLICLAZIDE [Concomitant]
     Active Substance: GLICLAZIDE
  22. HYDROMORPH CONTIN [Concomitant]
     Active Substance: HYDROMORPHONE
  23. SYNTHROID [Concomitant]
     Active Substance: LEVOTHYROXINE SODIUM

REACTIONS (1)
  - Spinal fracture [Unknown]
